FAERS Safety Report 11917830 (Version 1)
Quarter: 2016Q1

REPORT INFORMATION
  Report Type: Report from Study
  Country: US (occurrence: US)
  Receive Date: 20160114
  Receipt Date: 20160114
  Transmission Date: 20160526
  Serious: Yes (Death, Other)
  Sender: FDA-Public Use
  Company Number: US-REGENERON PHARMACEUTICALS, INC.-2016-10408

PATIENT

DRUGS (2)
  1. EYLEA [Suspect]
     Active Substance: AFLIBERCEPT
     Indication: RETINAL VEIN OCCLUSION
  2. EYLEA [Suspect]
     Active Substance: AFLIBERCEPT
     Indication: RETINAL OEDEMA
     Dosage: UNK
     Dates: start: 20140729, end: 20140923

REACTIONS (1)
  - Death [Fatal]

NARRATIVE: CASE EVENT DATE: 20150526
